FAERS Safety Report 20764379 (Version 1)
Quarter: 2022Q2

REPORT INFORMATION
  Report Type: Spontaneous
  Country: US (occurrence: None)
  Receive Date: 20220428
  Receipt Date: 20220428
  Transmission Date: 20220721
  Serious: Yes (Death)
  Sender: FDA-Public Use
  Company Number: None

PATIENT
  Sex: Female

DRUGS (11)
  1. TACROLIMUS [Suspect]
     Active Substance: TACROLIMUS
     Indication: Stem cell transplant
     Dosage: FREQUENCY : TWICE A DAY;?
     Route: 048
     Dates: start: 20220216
  2. PREVYMIS [Suspect]
     Active Substance: LETERMOVIR
     Dosage: FREQUENCY : DAILY;?
     Route: 048
     Dates: start: 20220216
  3. ACYCLOVIR [Concomitant]
     Active Substance: ACYCLOVIR
     Dates: start: 20220216
  4. AMLODIPINE [Concomitant]
     Active Substance: AMLODIPINE BESYLATE
     Dates: start: 20220324
  5. Mag-oxide 400mg [Concomitant]
     Dates: start: 20220216
  6. OLANZAPINE [Concomitant]
     Active Substance: OLANZAPINE
     Dates: start: 20220216
  7. OMEPRAZOLE [Concomitant]
     Active Substance: OMEPRAZOLE
     Dates: start: 20220216
  8. Posaconazole 100mg [Concomitant]
     Dates: start: 20220216
  9. Senna 8.6mg [Concomitant]
     Dates: start: 20220216
  10. SERTRALINE [Concomitant]
     Active Substance: SERTRALINE HYDROCHLORIDE
     Dates: start: 20220216
  11. Ursodiol 300mg [Concomitant]
     Dates: start: 20220216

REACTIONS (1)
  - Death [None]
